FAERS Safety Report 4777697-X (Version None)
Quarter: 2005Q3

REPORT INFORMATION
  Report Type: 
  Country: None (occurrence: None)
  Receive Date: 20050923
  Receipt Date: 20050622
  Transmission Date: 20060218
  Serious: Yes (Hospitalization)
  Sender: FDA-Public Use
  Company Number: US-MERCK-0506USA03311

PATIENT
  Age: 57 Year
  Sex: Male
  Weight: 89 kg

DRUGS (3)
  1. VIOXX [Suspect]
     Indication: ARTHRALGIA
     Route: 048
     Dates: start: 20010213, end: 20011204
  2. DILTIAZEM MALATE [Concomitant]
     Route: 065
  3. MEPERIDINE HYDROCHLORIDE [Concomitant]
     Route: 065

REACTIONS (6)
  - BLOOD CHOLESTEROL INCREASED [None]
  - CARDIAC DISORDER [None]
  - HEART RATE IRREGULAR [None]
  - INFLUENZA [None]
  - LUNG INFECTION [None]
  - MYOCARDIAL INFARCTION [None]
